FAERS Safety Report 7080595-2 (Version None)
Quarter: 2010Q4

REPORT INFORMATION
  Report Type: 
  Country: None (occurrence: None)
  Receive Date: 20101103
  Receipt Date: 20101027
  Transmission Date: 20110411
  Serious: Yes (Hospitalization, Other)
  Sender: FDA-Public Use
  Company Number: BR-ABBOTT-10P-020-0682022-00

PATIENT
  Sex: Female
  Weight: 69 kg

DRUGS (4)
  1. HUMIRA [Suspect]
     Indication: RHEUMATOID ARTHRITIS
     Route: 058
     Dates: start: 20050801, end: 20100901
  2. LOSARTAN [Concomitant]
     Indication: HYPERTENSION
     Route: 048
  3. OMEPRAZOLE [Concomitant]
     Indication: GASTRIC DISORDER
     Route: 048
  4. MELOXICAM [Concomitant]
     Indication: MUSCULOSKELETAL PAIN
     Route: 048
     Dates: start: 20050101

REACTIONS (8)
  - ASTHENIA [None]
  - CONVULSION [None]
  - DYSPNOEA [None]
  - HYPERTENSION [None]
  - MUSCULOSKELETAL PAIN [None]
  - PNEUMONIA [None]
  - RENAL FAILURE [None]
  - WEIGHT DECREASED [None]
